FAERS Safety Report 7488731-0 (Version None)
Quarter: 2011Q2

REPORT INFORMATION
  Report Type: 
  Country: None (occurrence: None)
  Receive Date: 20110518
  Receipt Date: 20110503
  Transmission Date: 20111010
  Serious: Yes (Other)
  Sender: FDA-Public Use
  Company Number: US-BAYER-2011-039179

PATIENT
  Sex: Female
  Weight: 61.224 kg

DRUGS (9)
  1. ASCORBIC ACID [Concomitant]
  2. OMEPRAZOLE [Concomitant]
     Dosage: UNK
  3. VITAMIN D [Concomitant]
  4. PHILLIPS' MILK OF MAGNESIA LIQUID CHERRY [Suspect]
     Indication: CONSTIPATION
     Dosage: BOTTLE SIZE 12 OZ
     Route: 048
  5. PEPCID [Concomitant]
     Dosage: UNK
  6. FISH OIL [Concomitant]
  7. DABIGATRAN ETEXILATE [Concomitant]
     Dosage: UNK
  8. CALCIUM [CALCIUM] [Concomitant]
  9. BIOTIN [Concomitant]

REACTIONS (1)
  - FAECES DISCOLOURED [None]
